FAERS Safety Report 8548121-6 (Version None)
Quarter: 2012Q3

REPORT INFORMATION
  Report Type: 
  Country: None (occurrence: None)
  Receive Date: 20120730
  Receipt Date: 20120719
  Transmission Date: 20120928
  Serious: No
  Sender: FDA-Public Use
  Company Number: US-009507513-1207USA007584

PATIENT

DRUGS (8)
  1. TRUVADA [Suspect]
     Dosage: 200-300 MG,QD
  2. SAPHRIS [Suspect]
     Dosage: 10 MG, BID
  3. ZOLPIDEM TARTRATE [Suspect]
     Dosage: 10 MG, PRN
  4. ISENTRESS [Suspect]
     Dosage: UNK
  5. ALPRAZOLAM [Suspect]
     Dosage: 0.5 MG, PRN
  6. ISENTRESS [Suspect]
     Indication: HIV INFECTION
     Dosage: 400 MG, BID
     Route: 048
  7. NEFAZODONE HCL [Suspect]
     Dosage: 300 MG, QD
  8. MIRTAZAPINE [Suspect]
     Dosage: 15 MG, QD

REACTIONS (1)
  - MENTAL DISORDER [None]
